FAERS Safety Report 7339982-7 (Version None)
Quarter: 2011Q1

REPORT INFORMATION
  Report Type: 
  Country: None (occurrence: None)
  Receive Date: 20110309
  Receipt Date: 20110304
  Transmission Date: 20110831
  Serious: Yes (Hospitalization, Disabling, Other)
  Sender: FDA-Public Use
  Company Number: US-PFIZER INC-2010160558

PATIENT
  Sex: Male

DRUGS (1)
  1. CHANTIX [Suspect]
     Indication: SMOKING CESSATION THERAPY
     Dosage: 1 MG, 1X/DAY
     Dates: start: 20080701, end: 20081101

REACTIONS (7)
  - PARANOIA [None]
  - LOSS OF CONSCIOUSNESS [None]
  - DELUSION [None]
  - BACK INJURY [None]
  - CONVULSION [None]
  - AMNESIA [None]
  - THINKING ABNORMAL [None]
